FAERS Safety Report 6969165-1 (Version None)
Quarter: 2010Q3

REPORT INFORMATION
  Report Type: 
  Country: None (occurrence: None)
  Receive Date: 20100907
  Receipt Date: 20100825
  Transmission Date: 20110219
  Serious: Yes (Hospitalization)
  Sender: FDA-Public Use
  Company Number: PHHY2010DE56719

PATIENT
  Sex: Male
  Weight: 92 kg

DRUGS (6)
  1. RASILEZ [Suspect]
     Indication: HYPERTENSION
     Dosage: 300 MG DAILY
     Route: 048
     Dates: start: 20080109
  2. RASILEZ [Suspect]
     Dosage: UNK
     Dates: start: 20081218
  3. DIURETICS [Concomitant]
  4. BISOPROLOL FUMARATE [Concomitant]
     Indication: HYPERTENSION
     Dosage: 5 MG DAILY
     Route: 048
     Dates: start: 20011121
  5. COAPROVEL [Concomitant]
     Dosage: 300/12.5 MG
     Route: 048
     Dates: start: 20060119
  6. CALCIUM CHANNEL BLOCKERS [Concomitant]
     Dosage: UNK
     Dates: start: 20090814

REACTIONS (1)
  - HYPERTENSIVE CRISIS [None]
